FAERS Safety Report 5569822-8 (Version None)
Quarter: 2007Q4

REPORT INFORMATION
  Report Type: 
  Country: None (occurrence: None)
  Receive Date: 20071220
  Receipt Date: 20070227
  Transmission Date: 20080405
  Serious: No
  Sender: FDA-Public Use
  Company Number: US-ABBOTT-07P-163-0361249-00

PATIENT
  Sex: Female
  Weight: 73.548 kg

DRUGS (2)
  1. OMNICEF [Suspect]
     Indication: SINUSITIS
     Route: 048
     Dates: start: 20070221, end: 20070227
  2. OMNICEF [Suspect]
     Indication: BRONCHITIS

REACTIONS (1)
  - FUNGAL INFECTION [None]
